FAERS Safety Report 7381866-2 (Version None)
Quarter: 2011Q1

REPORT INFORMATION
  Report Type: 
  Country: None (occurrence: None)
  Receive Date: 20110329
  Receipt Date: 20110324
  Transmission Date: 20110831
  Serious: Yes (Hospitalization, Other)
  Sender: FDA-Public Use
  Company Number: US-PFIZER INC-2010178510

PATIENT
  Sex: Female

DRUGS (2)
  1. CHANTIX [Suspect]
     Indication: SMOKING CESSATION THERAPY
     Dosage: STARTER PACK, CONTINUING PACK
     Dates: start: 20090201, end: 20090307
  2. XANAX [Concomitant]
     Indication: ANXIETY
     Dosage: UNK
     Dates: start: 20050101, end: 20091201

REACTIONS (4)
  - TENOSYNOVITIS STENOSANS [None]
  - LOSS OF CONSCIOUSNESS [None]
  - JOINT INJURY [None]
  - FALL [None]
